FAERS Safety Report 12342225 (Version 2)
Quarter: 2016Q2

REPORT INFORMATION
  Report Type: Spontaneous
  Country: RU (occurrence: RU)
  Receive Date: 20160506
  Receipt Date: 20160509
  Transmission Date: 20160815
  Serious: Yes (Death, Hospitalization, Other)
  Sender: FDA-Public Use
  Company Number: RU-BAYER-2016-081369

PATIENT
  Age: 26 Year
  Sex: Male

DRUGS (2)
  1. ACETYLSALICYLIC ACID (} 100 MG) [Suspect]
     Active Substance: ASPIRIN
     Dosage: 125 MG, QD
  2. BISOPROLOL [Concomitant]
     Active Substance: BISOPROLOL
     Dosage: 5 MG, QD

REACTIONS (20)
  - Encephalitis [None]
  - Dyspnoea [None]
  - Headache [None]
  - Leukocytosis [None]
  - Cardiopulmonary failure [Fatal]
  - Brain abscess [None]
  - Syncope [None]
  - Haematocrit increased [None]
  - Thrombocytopenia [None]
  - Cerebral haemorrhage [None]
  - Bone pain [None]
  - Brain oedema [Fatal]
  - Dyspnoea exertional [None]
  - Polycythaemia [None]
  - Epilepsy [None]
  - Hyperthermia [None]
  - Seizure [None]
  - Asthenia [None]
  - Loss of consciousness [None]
  - Haemoglobin decreased [None]

NARRATIVE: CASE EVENT DATE: 201312
